FAERS Safety Report 20659570 (Version 4)
Quarter: 2024Q1

REPORT INFORMATION
  Report Type: Spontaneous
  Country: US (occurrence: US)
  Receive Date: 20220331
  Receipt Date: 20240118
  Transmission Date: 20240410
  Serious: Yes (Other)
  Sender: FDA-Public Use
  Company Number: US-PFIZER INC-202101058177

PATIENT
  Age: 51 Year
  Sex: Female
  Weight: 110.2 kg

DRUGS (5)
  1. XELJANZ XR [Suspect]
     Active Substance: TOFACITINIB CITRATE
     Indication: SLE arthritis
     Dosage: 11 MG, 1X/DAY
     Dates: start: 2021
  2. XELJANZ XR [Suspect]
     Active Substance: TOFACITINIB CITRATE
     Indication: Rheumatoid arthritis
  3. HYDROXYZINE PAMOATE [Concomitant]
     Active Substance: HYDROXYZINE PAMOATE
     Dosage: 25 MG, EVERY OTHER DAY AS NEEDED
     Dates: start: 2022
  4. BENADRYL [Concomitant]
     Active Substance: DIPHENHYDRAMINE HYDROCHLORIDE
     Indication: Hypersensitivity
     Dosage: 2000, ALTERNATE DAY
     Dates: start: 2000
  5. MOMETASONE FUROATE [Concomitant]
     Active Substance: MOMETASONE FUROATE
     Dosage: 2 SQUIRTS Q(EVERY) NOSE GROVE
     Route: 045
     Dates: start: 2018

REACTIONS (4)
  - Coeliac disease [Unknown]
  - Intestinal barrier dysfunction [Unknown]
  - Food allergy [Unknown]
  - Hepatic enzyme increased [Unknown]
